FAERS Safety Report 9849542 (Version 2)
Quarter: 2014Q1

REPORT INFORMATION
  Report Type: Report from Study
  Country: CA (occurrence: CA)
  Receive Date: 20140128
  Receipt Date: 20140314
  Transmission Date: 20141002
  Serious: Yes (Death)
  Sender: FDA-Public Use
  Company Number: PHHY2014CA009864

PATIENT
  Age: 77 Year
  Sex: Female

DRUGS (5)
  1. ACLASTA [Suspect]
     Indication: OSTEOPOROSIS
     Dosage: 5 MG/100 ML
     Route: 042
     Dates: start: 20110629
  2. ACLASTA [Suspect]
     Dosage: 5 MG/100 ML
     Route: 042
     Dates: start: 20120727
  3. SPIRIVA [Concomitant]
     Dosage: UNK UKN, UNK
  4. VIT D [Concomitant]
     Dosage: UNK UKN, UNK
  5. VIT B12 [Concomitant]
     Dosage: UNK UKN, UNK

REACTIONS (1)
  - Sudden death [Fatal]
